FAERS Safety Report 16278489 (Version 1)
Quarter: 2019Q2

REPORT INFORMATION
  Report Type: Spontaneous
  Country: TW (occurrence: TW)
  Receive Date: 20190506
  Receipt Date: 20190506
  Transmission Date: 20190711
  Serious: Yes (Other)
  Sender: FDA-Public Use
  Company Number: TW-ASTRAZENECA-2019SE67876

PATIENT
  Age: 58 Year
  Sex: Female
  Weight: 47 kg

DRUGS (2)
  1. LETROZOLE. [Concomitant]
     Active Substance: LETROZOLE
     Dosage: 2.5MG 1 CAP QD FOR 28 DAYS
  2. FASLODEX [Suspect]
     Active Substance: FULVESTRANT
     Indication: BREAST CANCER
     Route: 030

REACTIONS (2)
  - Malignant neoplasm progression [Unknown]
  - Disease progression [Unknown]

NARRATIVE: CASE EVENT DATE: 20190311
